FAERS Safety Report 8126432-6 (Version None)
Quarter: 2012Q1

REPORT INFORMATION
  Report Type: 
  Country: None (occurrence: None)
  Receive Date: 20120209
  Receipt Date: 20120203
  Transmission Date: 20120608
  Serious: No
  Sender: FDA-Public Use
  Company Number: US-PFIZER INC-2012030874

PATIENT
  Sex: Female
  Weight: 50.34 kg

DRUGS (6)
  1. CELEBREX [Suspect]
     Indication: ARTHRITIS
     Dosage: UNK
     Dates: start: 20010101, end: 20010101
  2. FOLIC ACID [Concomitant]
     Dosage: UNK, 1X/DAY
  3. CALTRATE 600+D [Concomitant]
     Dosage: UNK
  4. CELEBREX [Suspect]
  5. METHOTREXATE [Concomitant]
     Indication: ARTHRITIS
     Dosage: 12.5 MG, WEEKLY
  6. SULFASALAZINE [Concomitant]
     Dosage: 1500 MG, 2X/DAY

REACTIONS (1)
  - BLOOD DISORDER [None]
